FAERS Safety Report 9363516 (Version 1)
Quarter: 2013Q2

REPORT INFORMATION
  Report Type: Report from Study
  Country: CA (occurrence: CA)
  Receive Date: 20130624
  Receipt Date: 20130624
  Transmission Date: 20140414
  Serious: Yes (Other)
  Sender: FDA-Public Use
  Company Number: CA-JNJFOC-20130610159

PATIENT
  Age: 43 Year
  Sex: Female
  Weight: 62.5 kg

DRUGS (4)
  1. REMICADE [Suspect]
     Indication: COLITIS ULCERATIVE
     Route: 042
     Dates: start: 2009
  2. SALOFALK [Concomitant]
     Route: 065
  3. WELLBATRIN [Concomitant]
     Route: 065
  4. LORAZEPAM [Concomitant]
     Route: 065

REACTIONS (3)
  - Fibromyalgia [Recovering/Resolving]
  - Proctitis [Recovering/Resolving]
  - Hypothyroidism [Recovering/Resolving]
